FAERS Safety Report 4457130-8 (Version None)
Quarter: 2004Q3

REPORT INFORMATION
  Report Type: 
  Country: None (occurrence: None)
  Receive Date: 20040921
  Receipt Date: 20040908
  Transmission Date: 20050211
  Serious: No
  Sender: FDA-Public Use
  Company Number: 04P-163-0272783-00

PATIENT
  Age: 60 Year
  Sex: Female
  Weight: 72.5755 kg

DRUGS (7)
  1. HUMIRA [Suspect]
     Indication: RHEUMATOID ARTHRITIS
     Dosage: 40 MG, 1 IN 2 WK, SUBCUTANEOUS
     Route: 058
     Dates: start: 20040311
  2. CALCIUM CARBONATE [Concomitant]
  3. TRANYLCYPROMINE SULFATE [Concomitant]
  4. FOLIC ACID [Concomitant]
  5. FLUTICASONE PROPIONATE [Concomitant]
  6. ALPRAZOLAM [Concomitant]
  7. ALENDRONATE SODIUM [Concomitant]

REACTIONS (2)
  - INFLUENZA LIKE ILLNESS [None]
  - THYROID NEOPLASM [None]
